FAERS Safety Report 5578762-X (Version None)
Quarter: 2007Q4

REPORT INFORMATION
  Report Type: 
  Country: None (occurrence: None)
  Receive Date: 20071228
  Receipt Date: 20071218
  Transmission Date: 20080405
  Serious: Yes (Hospitalization)
  Sender: FDA-Public Use
  Company Number: 163-21880-07111178

PATIENT
  Age: 68 Year
  Sex: Male

DRUGS (10)
  1. REVLIMID [Suspect]
     Indication: MULTIPLE MYELOMA
     Dosage: 25 MG, QD X 21 DAYS, ORAL
     Route: 048
     Dates: start: 20070901, end: 20071101
  2. DEXAMETHASONE `(DEXAMETHASONE) [Concomitant]
  3. MULTIVITAMIN [Concomitant]
  4. HYDROCODONE BITARTRATE [Concomitant]
  5. PROTONIX [Concomitant]
  6. POTASSIUM (POTASSIUM) [Concomitant]
  7. FLORINEF [Concomitant]
  8. PREDNISONE [Concomitant]
  9. FUROSEMIDE [Concomitant]
  10. WARFARIN SODIUM [Concomitant]

REACTIONS (4)
  - ANAEMIA [None]
  - CARDIAC FAILURE CONGESTIVE [None]
  - PANCYTOPENIA [None]
  - PULMONARY EMBOLISM [None]
